FAERS Safety Report 14283568 (Version 1)
Quarter: 2017Q4

REPORT INFORMATION
  Report Type: Spontaneous
  Country: IN (occurrence: IN)
  Receive Date: 20171214
  Receipt Date: 20171214
  Transmission Date: 20180321
  Serious: Yes (Hospitalization)
  Sender: FDA-Public Use
  Company Number: IN-AXELLIA-001215

PATIENT
  Age: 62 Year
  Sex: Male

DRUGS (3)
  1. COLISTIN [Suspect]
     Active Substance: COLISTIN
     Indication: PNEUMONIA ASPIRATION
  2. TEICOPLANIN [Suspect]
     Active Substance: TEICOPLANIN
     Indication: PNEUMONIA ASPIRATION
  3. IMIPENEM [Suspect]
     Active Substance: IMIPENEM
     Indication: PNEUMONIA ASPIRATION
     Dosage: QID

REACTIONS (1)
  - Drug resistance [Unknown]
